FAERS Safety Report 6507042-0 (Version None)
Quarter: 2009Q4

REPORT INFORMATION
  Report Type: 
  Country: None (occurrence: None)
  Receive Date: 20091221
  Receipt Date: 20091207
  Transmission Date: 20100525
  Serious: Yes (Hospitalization, Other)
  Sender: FDA-Public Use
  Company Number: PHHY2009US54395

PATIENT
  Sex: Female

DRUGS (2)
  1. TRILEPTAL [Suspect]
     Indication: CONVULSION
     Dosage: UNK, UNK
  2. TRILEPTAL [Suspect]
     Dosage: 900 MG

REACTIONS (5)
  - ANAEMIA [None]
  - BONE MARROW FAILURE [None]
  - BONE MARROW MYELOGRAM ABNORMAL [None]
  - CONVULSION [None]
  - VAGAL NERVE STIMULATOR IMPLANTATION [None]
